FAERS Safety Report 4505384-1 (Version None)
Quarter: 2004Q4

REPORT INFORMATION
  Report Type: 
  Country: None (occurrence: None)
  Receive Date: 20041015
  Receipt Date: 20040731
  Transmission Date: 20050328
  Serious: Yes (Other)
  Sender: FDA-Public Use
  Company Number: 2004028505

PATIENT
  Age: 6 Year
  Sex: Female
  Weight: 38.5557 kg

DRUGS (2)
  1. NEURONTIN [Suspect]
     Indication: CONVULSION
     Dosage: 3375 MG (1125 MG, 3 IN 1 D), ORAL
     Route: 048
     Dates: start: 20030108
  2. VALPROATE SODIUM [Concomitant]

REACTIONS (3)
  - COMPLEX PARTIAL SEIZURES [None]
  - INTENTIONAL OVERDOSE [None]
  - MEDICATION ERROR [None]
